FAERS Safety Report 18190667 (Version 1)
Quarter: 2020Q3

REPORT INFORMATION
  Report Type: Spontaneous
  Country: CA (occurrence: CA)
  Receive Date: 20200825
  Receipt Date: 20200825
  Transmission Date: 20201103
  Serious: Yes (Hospitalization, Other)
  Sender: FDA-Public Use
  Company Number: CA-TEVA-2020-CA-1817453

PATIENT
  Age: 70 Year
  Sex: Female

DRUGS (10)
  1. CARBOPLATIN INJECTION [Suspect]
     Active Substance: CARBOPLATIN
  2. AMLODIPINE [Concomitant]
     Active Substance: AMLODIPINE BESYLATE
  3. ONDANSETRON [Concomitant]
     Active Substance: ONDANSETRON
  4. COLACE [Concomitant]
     Active Substance: DOCUSATE SODIUM
  5. DEXAMETHASONE. [Concomitant]
     Active Substance: DEXAMETHASONE
  6. BUSCOPAN [Concomitant]
     Active Substance: BUTYLSCOPOLAMINE BROMIDE
  7. SENOKOT [Concomitant]
     Active Substance: SENNOSIDES
  8. XARELTO [Concomitant]
     Active Substance: RIVAROXABAN
  9. PACLITAXEL FOR INJECTION [Suspect]
     Active Substance: PACLITAXEL
  10. TYLENOL [Concomitant]
     Active Substance: ACETAMINOPHEN

REACTIONS (4)
  - Abdominal pain [Recovering/Resolving]
  - Vomiting [Recovering/Resolving]
  - Dehydration [Recovering/Resolving]
  - Nausea [Recovering/Resolving]
